FAERS Safety Report 22158886 (Version 3)
Quarter: 2023Q2

REPORT INFORMATION
  Report Type: Spontaneous
  Country: US (occurrence: US)
  Receive Date: 20230331
  Receipt Date: 20230511
  Transmission Date: 20230722
  Serious: No
  Sender: FDA-Public Use
  Company Number: US-AIMMUNE THERAPEUTICS, INC.-2023AIMT00271

PATIENT

DRUGS (6)
  1. PALFORZIA [Suspect]
     Active Substance: PEANUT
     Indication: Food allergy
     Dosage: IDE (0.5-6MG), ONCE
     Route: 048
  2. PALFORZIA [Suspect]
     Active Substance: PEANUT
     Dosage: 240 MG, 1X/DAY
     Route: 048
  3. PALFORZIA [Suspect]
     Active Substance: PEANUT
     Dosage: 240 MG, ONCE, LAST DOSE PRIOR REACTION
     Route: 048
  4. PALFORZIA [Suspect]
     Active Substance: PEANUT
     Dosage: 200 MG, 1X/DAY, DECREASE DOSE
     Route: 048
     Dates: start: 202303, end: 20230403
  5. PALFORZIA [Suspect]
     Active Substance: PEANUT
     Dosage: 240 MG, 1X/DAY, RE-UPDOSE
     Route: 048
     Dates: start: 20230404
  6. PALFORZIA [Suspect]
     Active Substance: PEANUT
     Dosage: 240 MG, ONCE, LAST DOSE PRIOR ITCHY MOUTH
     Route: 048
     Dates: start: 20230404, end: 20230404

REACTIONS (4)
  - Adverse drug reaction [Unknown]
  - Drug dose titration not performed [Unknown]
  - Throat irritation [Unknown]
  - Oral pruritus [Unknown]

NARRATIVE: CASE EVENT DATE: 20230404
